FAERS Safety Report 7692028 (Version 4)
Quarter: 2014Q2

REPORT INFORMATION
  Report Type: Spontaneous
  Country: US (occurrence: US)
  Receive Date: 20101204
  Receipt Date: 20140429
  Transmission Date: 20141212
  Serious: Yes (Other)
  Sender: FDA-Public Use
  Company Number: US-BAYER-2010-000689

PATIENT
  Age: 27 Year
  Sex: Female
  Weight: 106.58 kg

DRUGS (4)
  1. YASMIN [Suspect]
     Dosage: UNK
     Dates: start: 2001, end: 200501
  2. OCELLA [Suspect]
     Dosage: UNK
     Dates: start: 200907, end: 2010
  3. METRONIDAZOL [Concomitant]
     Dosage: 500 MG, UNK
     Dates: start: 20070706
  4. DARVOCET-N [Concomitant]
     Indication: PAIN

REACTIONS (3)
  - Gallbladder disorder [None]
  - Renal failure [None]
  - Cholecystitis chronic [None]
